FAERS Safety Report 14650665 (Version 3)
Quarter: 2018Q3

REPORT INFORMATION
  Report Type: Spontaneous
  Country: NL (occurrence: NL)
  Receive Date: 20180316
  Receipt Date: 20180720
  Transmission Date: 20181010
  Serious: Yes (Hospitalization)
  Sender: FDA-Public Use
  Company Number: NL-TEVA-2018-NL-868158

PATIENT
  Age: 27 Year
  Sex: Female
  Weight: 84 kg

DRUGS (1)
  1. IBUPROFEN TABLET, 200 MG (MILLIGRAM) [Suspect]
     Active Substance: IBUPROFEN
     Indication: HEADACHE
     Dosage: 1 TABLET
     Dates: start: 20180111, end: 20180111

REACTIONS (1)
  - Anaphylactic shock [Recovering/Resolving]

NARRATIVE: CASE EVENT DATE: 20180111
